FAERS Safety Report 6359688-0 (Version None)
Quarter: 2009Q3

REPORT INFORMATION
  Report Type: 
  Country: None (occurrence: None)
  Receive Date: 20090917
  Receipt Date: 20090903
  Transmission Date: 20100115
  Serious: Yes (Hospitalization, Other)
  Sender: FDA-Public Use
  Company Number: US-PFIZER INC-2009253449

PATIENT
  Sex: Female
  Weight: 41.7 kg

DRUGS (8)
  1. DEPO-MEDROL [Suspect]
     Indication: PAIN MANAGEMENT
     Dosage: UNK
     Route: 008
     Dates: start: 20090301, end: 20090301
  2. LIDOCAINE 2% [Suspect]
     Indication: PAIN MANAGEMENT
     Dosage: UNK
     Dates: start: 20090301, end: 20090301
  3. CORTISONE [Suspect]
  4. ZANAFLEX [Concomitant]
     Dosage: UNK
  5. OXYCONTIN [Concomitant]
     Dosage: UNK
  6. ZOLOFT [Concomitant]
     Dosage: UNK
  7. LUNESTA [Concomitant]
     Dosage: UNK
  8. WARFARIN SODIUM [Concomitant]
     Dosage: UNK

REACTIONS (11)
  - ABDOMINAL DISTENSION [None]
  - ABDOMINAL PAIN UPPER [None]
  - ELECTROLYTE IMBALANCE [None]
  - HALLUCINATION [None]
  - HYPERHIDROSIS [None]
  - HYPERSENSITIVITY [None]
  - INJECTION SITE INFECTION [None]
  - MUSCLE SPASMS [None]
  - NERVE INJURY [None]
  - PAIN [None]
  - TREMOR [None]
